FAERS Safety Report 7197509-7 (Version None)
Quarter: 2010Q4

REPORT INFORMATION
  Report Type: 
  Country: None (occurrence: None)
  Receive Date: 20101227
  Receipt Date: 20101221
  Transmission Date: 20110411
  Serious: Yes (Death, Other)
  Sender: FDA-Public Use
  Company Number: US-ASTELLAS-2010US005201

PATIENT

DRUGS (6)
  1. PROGRAF [Suspect]
     Indication: LUNG TRANSPLANT
     Dosage: UNK
     Route: 065
  2. AZATHIOPRINE [Suspect]
     Indication: LUNG TRANSPLANT
     Dosage: UNK
     Route: 065
  3. CYCLOSPORINE [Suspect]
     Indication: LUNG TRANSPLANT
     Dosage: UNK
     Route: 065
  4. PREDNISONE [Suspect]
     Indication: LUNG TRANSPLANT
     Dosage: UNK
     Route: 065
  5. SIROLIMUS [Suspect]
     Indication: LUNG TRANSPLANT
     Dosage: UNK
     Route: 065
  6. VFEND [Suspect]
     Indication: ANTIFUNGAL PROPHYLAXIS
     Dosage: 200 MG, BID
     Route: 048
     Dates: start: 20030101

REACTIONS (2)
  - METASTATIC SQUAMOUS CELL CARCINOMA [None]
  - SKIN CANCER [None]
